FAERS Safety Report 8174647-3 (Version None)
Quarter: 2012Q1

REPORT INFORMATION
  Report Type: 
  Country: None (occurrence: None)
  Receive Date: 20120229
  Receipt Date: 20120222
  Transmission Date: 20120608
  Serious: Yes (Other)
  Sender: FDA-Public Use
  Company Number: JP-JNJFOC-20120212523

PATIENT
  Sex: Female
  Weight: 48 kg

DRUGS (28)
  1. REMICADE [Suspect]
     Dosage: 14 INFUSIONS
     Route: 042
  2. RINDERON-A [Concomitant]
     Dosage: 6 TIMES IN THE LEFT EYE DAILY
     Route: 031
     Dates: start: 20110126, end: 20110203
  3. RINDERON-A [Concomitant]
     Dosage: 4 TIMES IN LEFT EYE DAILY
     Route: 031
     Dates: start: 20101203, end: 20101209
  4. FLUOROMETHOLONE [Concomitant]
     Dosage: TWICE IN THE LEFT EYE DAILY
     Route: 031
     Dates: start: 20100205, end: 20100401
  5. PYDOXAL [Concomitant]
     Indication: PROPHYLAXIS
     Route: 048
  6. RINDERON-A [Concomitant]
     Dosage: TWICE IN THE LEFT EYE DAILY
     Route: 031
     Dates: start: 20110204, end: 20110320
  7. FLUOROMETHOLONE [Concomitant]
     Indication: BEHCET'S SYNDROME
     Dosage: TWICE DAILY IN BOTH EYES
     Route: 031
     Dates: start: 20101015, end: 20101202
  8. ISONIAZID [Concomitant]
     Indication: PROPHYLAXIS
     Route: 048
     Dates: start: 20091225, end: 20101125
  9. RINDERON-A [Concomitant]
     Dosage: 4 TIMES IN BOTH EYES DAILY
     Route: 031
     Dates: start: 20100930, end: 20101014
  10. RINDERON-A [Concomitant]
     Dosage: DOSE= TWICE IN LEFT EYE DAILY
     Route: 031
     Dates: start: 20100121, end: 20100204
  11. MYDRIN-P [Concomitant]
     Dosage: ONCE IN BOTH EYES DAILY
     Route: 031
     Dates: start: 20110325, end: 20110407
  12. DECADRON [Concomitant]
     Dosage: LEFT EYE
     Route: 031
     Dates: start: 20110126, end: 20110126
  13. REMICADE [Suspect]
     Dosage: 16TH INFUSION
     Route: 042
     Dates: start: 20120119
  14. RINDERON-A [Concomitant]
     Indication: BEHCET'S SYNDROME
     Dosage: THREE TIMES IN BOTH EYES DAILY
     Route: 031
     Dates: start: 20110408, end: 20110509
  15. RINDERON-A [Concomitant]
     Dosage: 6 TIMES IN BOTH EYES DAILY
     Route: 031
     Dates: start: 20110321, end: 20110407
  16. FLUOROMETHOLONE [Concomitant]
     Dosage: TWICE IN RIGHT EYE DAILY
     Route: 031
     Dates: start: 20101203, end: 20101209
  17. FLUOROMETHOLONE [Concomitant]
     Route: 031
     Dates: start: 20101210, end: 20110111
  18. DECADRON [Concomitant]
     Dosage: LEFT EYE
     Route: 031
     Dates: start: 20090910
  19. DECADRON [Concomitant]
     Dosage: RIGHT EYE
     Route: 031
     Dates: start: 20110321, end: 20110321
  20. DECADRON [Concomitant]
     Dosage: LEFT EYE
     Route: 031
     Dates: start: 20101209, end: 20101209
  21. DECADRON [Concomitant]
     Indication: BEHCET'S SYNDROME
     Dosage: LEFT EYE
     Route: 031
     Dates: start: 20100930, end: 20100930
  22. RINDERON-A [Concomitant]
     Dosage: 4 TIMES IN THE LEFT EYE AND TWICE IN THE RIGHT EYE DAILY
     Route: 031
     Dates: start: 20110510, end: 20110517
  23. RINDERON-A [Concomitant]
     Dosage: TWICE DAILY IN BOTH EYES
     Route: 031
     Dates: start: 20110518, end: 20110623
  24. DECADRON [Concomitant]
     Dosage: LEFT EYE
     Route: 031
     Dates: start: 20100107
  25. REMICADE [Suspect]
     Indication: BEHCET'S SYNDROME
     Dosage: FIRST INFUSION
     Route: 042
     Dates: start: 20100121
  26. TRIMETHOPRIM [Suspect]
     Indication: BEHCET'S SYNDROME
     Dosage: INJECTION INTO LEFT TENDON CAPSULE
     Dates: start: 20110331, end: 20110331
  27. FLUOROMETHOLONE [Concomitant]
     Dosage: 3 TIMES IN THE LEFT EYE DAILY
     Route: 031
     Dates: start: 20091120, end: 20100106
  28. MYDRIN-P [Concomitant]
     Indication: BEHCET'S SYNDROME
     Dosage: 3 TIMES DAILY IN BOTH EYES
     Route: 031
     Dates: start: 20110321, end: 20110324

REACTIONS (1)
  - INTRAOCULAR PRESSURE INCREASED [None]
